FAERS Safety Report 6763063-4 (Version None)
Quarter: 2010Q2

REPORT INFORMATION
  Report Type: 
  Country: None (occurrence: None)
  Receive Date: 20100609
  Receipt Date: 20100527
  Transmission Date: 20101027
  Serious: Yes (Other)
  Sender: FDA-Public Use
  Company Number: PHHY2010US35078

PATIENT

DRUGS (1)
  1. RECLAST [Suspect]
     Route: 042

REACTIONS (1)
  - THROMBOSIS [None]
